FAERS Safety Report 4462645-2 (Version None)
Quarter: 2004Q3

REPORT INFORMATION
  Report Type: 
  Country: None (occurrence: None)
  Receive Date: 20040929
  Receipt Date: 20040914
  Transmission Date: 20050211
  Serious: No
  Sender: FDA-Public Use
  Company Number: APP200400745

PATIENT
  Age: 73 Year
  Sex: Female

DRUGS (3)
  1. PAMIDRONATE DISODIUM [Suspect]
     Indication: METASTASES TO BONE
     Dosage: SEE IMAGE
     Route: 042
     Dates: start: 19991001, end: 20031001
  2. STEROID (STER-DEX) [Concomitant]
  3. TAMOXIFEN CITRATE [Concomitant]

REACTIONS (3)
  - BONE GRAFT [None]
  - GENERAL PHYSICAL HEALTH DETERIORATION [None]
  - OSTEONECROSIS [None]
